FAERS Safety Report 18259875 (Version 1)
Quarter: 2020Q3

REPORT INFORMATION
  Report Type: Report from Study
  Country: BR (occurrence: BR)
  Receive Date: 20200912
  Receipt Date: 20200912
  Transmission Date: 20201103
  Serious: Yes (Other)
  Sender: FDA-Public Use
  Company Number: NVSC2020BR248934

PATIENT
  Age: 74 Year
  Sex: Female

DRUGS (1)
  1. REVOLADE [Suspect]
     Active Substance: ELTROMBOPAG
     Indication: IMMUNE THROMBOCYTOPENIA
     Dosage: 25 MG, QD
     Route: 065
     Dates: start: 201911

REACTIONS (7)
  - Dyslipidaemia [Unknown]
  - Insulin resistance [Unknown]
  - Metabolic syndrome [Unknown]
  - Diabetes mellitus [Unknown]
  - Incorrect dose administered [Unknown]
  - Obesity [Unknown]
  - Hypertension [Unknown]
